FAERS Safety Report 11258125 (Version 1)
Quarter: 2015Q3

REPORT INFORMATION
  Report Type: Spontaneous
  Country: US (occurrence: None)
  Receive Date: 20150709
  Receipt Date: 20150709
  Transmission Date: 20151125
  Serious: Yes (Death)
  Sender: FDA-Public Use
  Company Number: None

PATIENT
  Age: 58 Year
  Sex: Male

DRUGS (2)
  1. SPRYCEL [Suspect]
     Active Substance: DASATINIB
     Indication: NEOPLASM MALIGNANT
     Dosage: SPRYCEL, 50 MG, ORAL
     Route: 048
     Dates: start: 20141203
  2. AFINITOR [Suspect]
     Active Substance: EVEROLIMUS
     Indication: NEOPLASM MALIGNANT
     Dosage: AFINITOR, 5 MG, ORAL
     Route: 048
     Dates: start: 20141209

REACTIONS (1)
  - Disease progression [None]

NARRATIVE: CASE EVENT DATE: 20150708
